FAERS Safety Report 4760108-8 (Version None)
Quarter: 2005Q3

REPORT INFORMATION
  Report Type: 
  Country: None (occurrence: None)
  Receive Date: 20050902
  Receipt Date: 20050502
  Transmission Date: 20060218
  Serious: No
  Sender: FDA-Public Use
  Company Number: US-GLAXOSMITHKLINE-A0556937A

PATIENT
  Age: 76 Year
  Sex: Female

DRUGS (4)
  1. REQUIP [Suspect]
     Indication: PARKINSON'S DISEASE
     Dosage: .25MG THREE TIMES PER DAY
     Route: 048
     Dates: start: 20050423
  2. SINEMET [Concomitant]
  3. PREMARIN CREAM [Concomitant]
  4. FOSAMAX [Concomitant]

REACTIONS (2)
  - DISORIENTATION [None]
  - SOMNOLENCE [None]
